FAERS Safety Report 13654959 (Version 1)
Quarter: 2017Q2

REPORT INFORMATION
  Report Type: Report from Study
  Country: US (occurrence: US)
  Receive Date: 20170615
  Receipt Date: 20170615
  Transmission Date: 20170830
  Serious: Yes (Hospitalization)
  Sender: FDA-Public Use
  Company Number: US-CORCEPT THERAPEUTICS INC.-US-2017CRT000438

PATIENT

DRUGS (5)
  1. KORLYM [Suspect]
     Active Substance: MIFEPRISTONE
     Indication: HYPERGLYCAEMIA
     Dosage: 900 MG, QD
     Route: 048
     Dates: start: 201701, end: 201702
  2. KORLYM [Suspect]
     Active Substance: MIFEPRISTONE
     Indication: TYPE 2 DIABETES MELLITUS
     Dosage: 600 MG, QD
     Route: 048
     Dates: start: 201701, end: 201701
  3. KORLYM [Suspect]
     Active Substance: MIFEPRISTONE
     Indication: TYPE V HYPERLIPIDAEMIA
     Dosage: 1200 MG, QD
     Route: 048
     Dates: start: 201703, end: 201704
  4. KORLYM [Suspect]
     Active Substance: MIFEPRISTONE
     Dosage: 1200 MG, QD
     Route: 048
     Dates: start: 2017
  5. KORLYM [Suspect]
     Active Substance: MIFEPRISTONE
     Indication: CUSHING^S SYNDROME
     Dosage: 300 MG, QD
     Route: 048
     Dates: start: 201612, end: 201701

REACTIONS (1)
  - Thyroid disorder [Recovering/Resolving]
